FAERS Safety Report 23973005 (Version 1)
Quarter: 2024Q2

REPORT INFORMATION
  Report Type: Spontaneous
  Country: US (occurrence: None)
  Receive Date: 20240613
  Receipt Date: 20240613
  Transmission Date: 20240716
  Serious: Yes (Death)
  Sender: FDA-Public Use
  Company Number: None

PATIENT
  Age: 76 Year
  Sex: Male

DRUGS (1)
  1. STIVARGA [Suspect]
     Active Substance: REGORAFENIB\REGORAFENIB MONOHYDRATE
     Indication: Cholangiocarcinoma
     Dosage: TAKE 3TABLETS BY MOUTH DAILY FOR 21  DAYS  WITHHOLD FOR 7 DAYS, THEN REPEAT CYCLE; TAKE AFTER LOW FA
     Route: 048
     Dates: start: 202401

REACTIONS (2)
  - Neoplasm malignant [None]
  - Disease complication [None]

NARRATIVE: CASE EVENT DATE: 20240522
